FAERS Safety Report 7313210-0 (Version None)
Quarter: 2011Q1

REPORT INFORMATION
  Report Type: 
  Country: None (occurrence: None)
  Receive Date: 20110225
  Receipt Date: 20110215
  Transmission Date: 20110831
  Serious: Yes (Hospitalization, Other)
  Sender: FDA-Public Use
  Company Number: US-ELI_LILLY_AND_COMPANY-US201004005164

PATIENT
  Sex: Female

DRUGS (19)
  1. SIMVASTATIN [Concomitant]
     Indication: BLOOD CHOLESTEROL
     Dosage: 40 MG, DAILY (1/D)
  2. MULTI-VITAMIN [Concomitant]
  3. VITAMIN D [Concomitant]
     Dosage: 50000 U, WEEKLY (1/W)
  4. ASPIRIN [Concomitant]
  5. HYDROCHLOROTHIAZIDE [Concomitant]
     Dosage: 25 MG, DAILY (1/D)
  6. CENTRUM [Concomitant]
  7. FORTEO [Suspect]
     Indication: OSTEOPOROSIS
     Dosage: 20 UG, DAILY (1/D)
     Route: 065
     Dates: start: 20090707
  8. FORTEO [Suspect]
     Dosage: 20 UG, DAILY (1/D)
     Route: 065
     Dates: end: 20100416
  9. LISINOPRIL [Concomitant]
     Indication: BLOOD PRESSURE
     Dosage: 20 MG, DAILY (1/D)
  10. CALCIUM [Concomitant]
     Dosage: UNK, 3/D
  11. LOVAZA [Concomitant]
  12. FORTEO [Suspect]
     Dosage: 20 UG, DAILY (1/D)
     Route: 065
     Dates: start: 20100427
  13. POTASSIUM [Concomitant]
     Dosage: 8 MG, DAILY (1/D)
  14. FORTEO [Suspect]
     Dosage: 20 UG, QOD
     Route: 065
  15. FORTEO [Suspect]
     Dosage: 20 UG, DAILY (1/D)
     Route: 065
  16. CITALOPRAM [Concomitant]
     Dosage: 30 MG, UNKNOWN
  17. KETOROLAC TROMETHAMINE [Concomitant]
  18. LOVENOX [Concomitant]
     Indication: THROMBOSIS
  19. CENTRUM SILVER [Concomitant]

REACTIONS (13)
  - KNEE ARTHROPLASTY [None]
  - PAIN IN EXTREMITY [None]
  - PRESYNCOPE [None]
  - ARTHRALGIA [None]
  - JOINT EFFUSION [None]
  - PAIN [None]
  - FEELING ABNORMAL [None]
  - INSOMNIA [None]
  - DIZZINESS POSTURAL [None]
  - MUSCLE SPASMS [None]
  - ARTHROPATHY [None]
  - BLOOD PRESSURE DECREASED [None]
  - FATIGUE [None]
